FAERS Safety Report 23188919 (Version 1)
Quarter: 2023Q4

REPORT INFORMATION
  Report Type: Spontaneous
  Country: BR (occurrence: BR)
  Receive Date: 20231115
  Receipt Date: 20231115
  Transmission Date: 20240109
  Serious: Yes (Other)
  Sender: FDA-Public Use
  Company Number: BR-NOVOPROD-1138519

PATIENT
  Age: 572 Month
  Sex: Female

DRUGS (2)
  1. OZEMPIC [Suspect]
     Active Substance: SEMAGLUTIDE
     Indication: Product used for unknown indication
     Dosage: MINIMUM DOSE
     Dates: start: 2021
  2. OZEMPIC [Suspect]
     Active Substance: SEMAGLUTIDE
     Dosage: RESTARTED

REACTIONS (4)
  - Accident [Unknown]
  - Shoulder operation [Unknown]
  - Malaise [Unknown]
  - Hypertension [Unknown]

NARRATIVE: CASE EVENT DATE: 20231104
